FAERS Safety Report 8208125-X (Version None)
Quarter: 2012Q1

REPORT INFORMATION
  Report Type: 
  Country: None (occurrence: None)
  Receive Date: 20120314
  Receipt Date: 20120307
  Transmission Date: 20120608
  Serious: Yes (Hospitalization)
  Sender: FDA-Public Use
  Company Number: PHHY2012NL020572

PATIENT
  Sex: Male

DRUGS (3)
  1. ZOMETA [Suspect]
     Indication: RENAL CELL CARCINOMA
     Dosage: 4 MG/100 ML ONCE EVERY 28 DAYS
     Route: 042
     Dates: start: 20110905
  2. SUTENT [Suspect]
     Dosage: 50 MG, BID
  3. ZOMETA [Suspect]
     Dosage: 4 MG/100 ML ONCE EVERY 28 DAYS
     Route: 042
     Dates: start: 20120201

REACTIONS (7)
  - MUCOUS MEMBRANE DISORDER [None]
  - HYPERTENSION [None]
  - YELLOW SKIN [None]
  - DEHYDRATION [None]
  - MALAISE [None]
  - VOMITING [None]
  - DIARRHOEA [None]
